FAERS Safety Report 4778951-8 (Version None)
Quarter: 2005Q3

REPORT INFORMATION
  Report Type: 
  Country: None (occurrence: None)
  Receive Date: 20050922
  Receipt Date: 20050913
  Transmission Date: 20060218
  Serious: Yes (Hospitalization)
  Sender: FDA-Public Use
  Company Number: 2005-132532-NL

PATIENT
  Age: 68 Year
  Sex: Male

DRUGS (1)
  1. MIRTAZAPINE [Suspect]
     Indication: ANXIETY
     Dosage: 30 MG
     Route: 048
     Dates: start: 20040901, end: 20050912

REACTIONS (4)
  - ARRHYTHMIA [None]
  - CONVULSION [None]
  - METABOLIC ACIDOSIS [None]
  - MYOCLONUS [None]
